FAERS Safety Report 17721555 (Version 3)
Quarter: 2020Q2

REPORT INFORMATION
  Report Type: Report from Study
  Country: BD (occurrence: BD)
  Receive Date: 20200429
  Receipt Date: 20200506
  Transmission Date: 20200714
  Serious: Yes (Death, Other)
  Sender: FDA-Public Use
  Company Number: BD-ORION CORPORATION ORION PHARMA-ENTC2020-0136

PATIENT
  Age: 67 Year
  Sex: Male

DRUGS (2)
  1. STALEVO [Suspect]
     Active Substance: CARBIDOPA\ENTACAPONE\LEVODOPA
     Indication: PARKINSON^S DISEASE
     Dosage: STRENGTH: 125 MG
     Route: 065
     Dates: start: 201512
  2. UTROBIN [Concomitant]
     Route: 065

REACTIONS (6)
  - Death [Fatal]
  - Wound infection [Unknown]
  - Urine output increased [Unknown]
  - Urinary tract infection [Unknown]
  - Pyrexia [Unknown]
  - Nephropathy [Unknown]

NARRATIVE: CASE EVENT DATE: 202002
